FAERS Safety Report 7499686-7 (Version None)
Quarter: 2011Q2

REPORT INFORMATION
  Report Type: 
  Country: None (occurrence: None)
  Receive Date: 20110524
  Receipt Date: 20110519
  Transmission Date: 20111010
  Serious: Yes (Other)
  Sender: FDA-Public Use
  Company Number: CN-PFIZER INC-2011108654

PATIENT
  Age: 65 Year
  Sex: Female

DRUGS (3)
  1. BETALOC [Concomitant]
     Indication: HYPERTENSION
  2. ADALAT [Concomitant]
     Indication: HYPERTENSION
  3. LIPITOR [Suspect]
     Indication: HYPERLIPIDAEMIA
     Dosage: 20 MG, 1X/DAY
     Route: 048
     Dates: start: 20110414, end: 20110401

REACTIONS (4)
  - HIGH DENSITY LIPOPROTEIN DECREASED [None]
  - VERY LOW DENSITY LIPOPROTEIN INCREASED [None]
  - DEAFNESS UNILATERAL [None]
  - BLOOD TRIGLYCERIDES INCREASED [None]
